FAERS Safety Report 6946634-1 (Version None)
Quarter: 2010Q3

REPORT INFORMATION
  Report Type: 
  Country: None (occurrence: None)
  Receive Date: 20100825
  Receipt Date: 20100804
  Transmission Date: 20110219
  Serious: Yes (Hospitalization, Other)
  Sender: FDA-Public Use
  Company Number: 2010080041

PATIENT
  Age: 35 Year
  Sex: Male

DRUGS (3)
  1. MEPROBAMATE [Suspect]
  2. BACLOFEN [Suspect]
  3. ALCOHOL (ALCOHOL) [Suspect]

REACTIONS (6)
  - BLOOD ALCOHOL INCREASED [None]
  - CHOLESTASIS [None]
  - LOSS OF CONSCIOUSNESS [None]
  - SINUS TACHYCARDIA [None]
  - VENTRICULAR EXTRASYSTOLES [None]
  - VENTRICULAR FIBRILLATION [None]
